FAERS Safety Report 6850301-2 (Version None)
Quarter: 2010Q3

REPORT INFORMATION
  Report Type: 
  Country: None (occurrence: None)
  Receive Date: 20100716
  Receipt Date: 20071016
  Transmission Date: 20110219
  Serious: No
  Sender: FDA-Public Use
  Company Number: US-PFIZER INC-2007086561

PATIENT
  Sex: Male
  Weight: 93.2 kg

DRUGS (2)
  1. CHANTIX [Suspect]
     Indication: SMOKING CESSATION THERAPY
     Route: 048
     Dates: start: 20071015
  2. XANAX [Concomitant]
     Indication: ANXIETY
     Route: 048

REACTIONS (1)
  - RASH MACULAR [None]
